FAERS Safety Report 8026027-9 (Version None)
Quarter: 2012Q1

REPORT INFORMATION
  Report Type: 
  Country: None (occurrence: None)
  Receive Date: 20120105
  Receipt Date: 20110121
  Transmission Date: 20120608
  Serious: No
  Sender: FDA-Public Use
  Company Number: US-ABBOTT-11P-163-0700427-00

PATIENT
  Sex: Male
  Weight: 78.088 kg

DRUGS (3)
  1. SYNTHROID [Suspect]
     Indication: PRODUCT USED FOR UNKNOWN INDICATION
     Dates: start: 20100801
  2. SYNTHROID [Suspect]
     Dosage: 25 MCG
     Dates: start: 20080101, end: 20100801
  3. DIOVAN [Concomitant]
     Indication: HYPERTENSION
     Dates: start: 20070301

REACTIONS (1)
  - BLOOD THYROID STIMULATING HORMONE INCREASED [None]
